FAERS Safety Report 22969900 (Version 5)
Quarter: 2023Q4

REPORT INFORMATION
  Report Type: Other
  Country: IT (occurrence: IT)
  Receive Date: 20230922
  Receipt Date: 20231107
  Transmission Date: 20240110
  Serious: Yes (Death, Hospitalization)
  Sender: FDA-Public Use
  Company Number: IT-PFIZER INC-202300298912

PATIENT
  Age: 73 Year
  Sex: Female

DRUGS (1)
  1. RITUXIMAB [Suspect]
     Active Substance: RITUXIMAB
     Indication: Non-Hodgkin^s lymphoma
     Dosage: CYCLIC (LAST INFUSION 2 MONTHS BEFORE ADMISSION)
     Route: 065

REACTIONS (2)
  - Superinfection bacterial [Fatal]
  - COVID-19 [Fatal]
